FAERS Safety Report 23142677 (Version 1)
Quarter: 2023Q4

REPORT INFORMATION
  Report Type: Spontaneous
  Country: US (occurrence: None)
  Receive Date: 20231102
  Receipt Date: 20231102
  Transmission Date: 20240110
  Serious: Yes (Life-Threatening)
  Sender: FDA-Public Use
  Company Number: None

PATIENT
  Age: 6 Year
  Sex: Male
  Weight: 24.75 kg

DRUGS (2)
  1. MONTELUKAST [Suspect]
     Active Substance: MONTELUKAST SODIUM
     Indication: Asthma
     Dosage: OTHER QUANTITY : 1 TABLET(S);?FREQUENCY : AT BEDTIME;?
     Route: 048
     Dates: start: 20231016, end: 20231023
  2. MONTELUKAST [Suspect]
     Active Substance: MONTELUKAST SODIUM
     Indication: Multiple allergies

REACTIONS (8)
  - Intrusive thoughts [None]
  - Homicidal ideation [None]
  - Hallucination, auditory [None]
  - Negative thoughts [None]
  - Abnormal behaviour [None]
  - Irritability [None]
  - Mood swings [None]
  - Crying [None]

NARRATIVE: CASE EVENT DATE: 20231022
